FAERS Safety Report 10977426 (Version 1)
Quarter: 2015Q1

REPORT INFORMATION
  Report Type: Spontaneous
  Country: US (occurrence: None)
  Receive Date: 20150226
  Receipt Date: 20150226
  Transmission Date: 20150721
  Serious: No
  Sender: FDA-Public Use
  Company Number: TPA2009A03022

PATIENT
  Sex: Male
  Weight: 137.89 kg

DRUGS (11)
  1. ULORIC [Suspect]
     Active Substance: FEBUXOSTAT
     Indication: GOUTY TOPHUS
     Route: 048
     Dates: start: 201103, end: 2009
  2. CHERRY PILLS (ALL OTHER THERAPEUTIC PRODUCTS) [Concomitant]
  3. GINSENG (GINSENG NOS) [Concomitant]
  4. NEXIUM [Concomitant]
     Active Substance: ESOMEPRAZOLE MAGNESIUM
  5. LABETALOL [Concomitant]
     Active Substance: LABETALOL\LABETALOL HYDROCHLORIDE
  6. VITAMIN B12 [Concomitant]
     Active Substance: CYANOCOBALAMIN
  7. ALLOPURINOL. [Concomitant]
     Active Substance: ALLOPURINOL
  8. HYDROCODONE W/ACETAMINOPHEN (PARACETAMOL, HYDROCODONE BITARTRATE) [Concomitant]
  9. AMLODIPINE [Concomitant]
     Active Substance: AMLODIPINE BESYLATE
  10. MVI (VITAMINS NOS) [Concomitant]
  11. SAW PALMETTO (SERENOA REPENS) [Concomitant]
     Active Substance: SAW PALMETTO

REACTIONS (2)
  - Renal impairment [None]
  - Blood creatinine increased [None]

NARRATIVE: CASE EVENT DATE: 2009
